FAERS Safety Report 5027045-5 (Version None)
Quarter: 2006Q2

REPORT INFORMATION
  Report Type: 
  Country: None (occurrence: None)
  Receive Date: 20060609
  Receipt Date: 20060530
  Transmission Date: 20061013
  Serious: Yes (Other)
  Sender: FDA-Public Use
  Company Number: 2006060630

PATIENT
  Age: 56 Year
  Sex: Female

DRUGS (20)
  1. GABAPENTIN [Suspect]
     Indication: ILL-DEFINED DISORDER
     Dosage: 1200 MG (3 IN 1 D)
     Dates: start: 20040101, end: 20060501
  2. NEURONTIN [Suspect]
     Indication: ILL-DEFINED DISORDER
  3. OXYCODONE (OXYCODONE) [Concomitant]
  4. ACETAMINOPHEN [Concomitant]
  5. TEMAZEPAM [Concomitant]
  6. VALIUM [Concomitant]
  7. CLONIDINE [Concomitant]
  8. DARVON [Concomitant]
  9. EFFEXOR [Concomitant]
  10. REGLAN [Concomitant]
  11. FENTANYL [Concomitant]
  12. ASPIRIN [Concomitant]
  13. IRON (IRON) [Concomitant]
  14. ROBINUL (GLYCOPYRRONIUM BROMIDE) [Concomitant]
  15. VICODIN [Concomitant]
  16. BACLOFEN [Concomitant]
  17. MECLIZINE [Concomitant]
  18. MANDELAMINE (METHENAMINE MANDELATE) [Concomitant]
  19. MIACALCIN [Concomitant]
  20. FOSAMAX [Concomitant]

REACTIONS (12)
  - BILIARY CANCER METASTATIC [None]
  - CONFUSIONAL STATE [None]
  - DRUG INEFFECTIVE [None]
  - DYSKINESIA [None]
  - DYSPHAGIA [None]
  - HYPERHIDROSIS [None]
  - INCOHERENT [None]
  - INSOMNIA [None]
  - LOGORRHOEA [None]
  - NEOPLASM MALIGNANT [None]
  - ORAL INTAKE REDUCED [None]
  - QUADRIPLEGIA [None]
